FAERS Safety Report 4960889-4 (Version None)
Quarter: 2006Q2

REPORT INFORMATION
  Report Type: 
  Country: None (occurrence: None)
  Receive Date: 20060403
  Receipt Date: 20030408
  Transmission Date: 20061013
  Serious: Yes (Life-Threatening, Hospitalization, Disabling, Other)
  Sender: FDA-Public Use
  Company Number: 200313999GDDC

PATIENT
  Sex: Female
  Weight: 57 kg

DRUGS (25)
  1. UNFRACTIONATED HEPARIN [Suspect]
     Indication: MYOCARDIAL INFARCTION
     Dosage: DOSE: ENOX/PLACEBO BOLUS 30 MG
     Route: 040
     Dates: start: 20030223, end: 20030223
  2. UNFRACTIONATED HEPARIN [Suspect]
     Dosage: DOSE: HEP/PLACEBO BOLUS 3240 UNITS
     Route: 040
     Dates: start: 20030223, end: 20030223
  3. UNFRACTIONATED HEPARIN [Suspect]
     Dosage: DOSE: ENOX/PLACEBO SC 57 MG
     Route: 058
     Dates: start: 20030223, end: 20030302
  4. UNFRACTIONATED HEPARIN [Suspect]
     Dosage: DOSE: HEP/PLACEBO IV 650 IU
     Route: 041
     Dates: start: 20030223, end: 20030225
  5. ASPIRIN [Suspect]
     Indication: MYOCARDIAL INFARCTION
     Route: 048
     Dates: start: 20030223, end: 20030307
  6. STREPTOKINASE [Suspect]
     Indication: MYOCARDIAL INFARCTION
     Route: 042
     Dates: start: 20030223, end: 20030223
  7. BISOPROLOL [Concomitant]
     Indication: ACUTE MYOCARDIAL INFARCTION
     Route: 048
     Dates: start: 20030304
  8. GLICLAZIDE [Concomitant]
     Indication: DIABETES MELLITUS
     Route: 048
     Dates: end: 20030101
  9. CILAZAPRIL [Concomitant]
     Indication: ACUTE MYOCARDIAL INFARCTION
     Route: 048
     Dates: start: 20030227
  10. CILAZAPRIL [Concomitant]
  11. RANITIDINE [Concomitant]
     Route: 048
     Dates: start: 20030307
  12. HYDROCORTISONE [Concomitant]
     Route: 042
     Dates: start: 20030314
  13. METOCLOPRAMIDE [Concomitant]
     Route: 048
     Dates: start: 20030307
  14. ISOSORBIDE DINITRATE [Concomitant]
  15. MOLSIDOMINE [Concomitant]
  16. ASPIRIN [Concomitant]
  17. FUROSEMIDE [Concomitant]
     Indication: HYPERTENSION
     Dosage: DOSE: UNK
     Route: 042
     Dates: end: 20030101
  18. HYDROCHLOROTHIAZIDE [Concomitant]
     Indication: HYPERTENSION
     Dosage: DOSE: UNK
     Route: 048
     Dates: end: 20030101
  19. CAPTOPRIL [Concomitant]
     Indication: HYPERTENSION
     Dosage: DOSE: UNK
     Route: 048
     Dates: end: 20030101
  20. METFORMIN [Concomitant]
     Indication: DIABETES MELLITUS
     Dosage: DOSE: UNK
     Route: 048
     Dates: end: 20030101
  21. AMLODIPINE [Concomitant]
     Indication: HYPERTENSION
     Route: 048
     Dates: end: 20030101
  22. CIMETIDINE [Concomitant]
     Indication: GASTRITIS
     Dosage: DOSE: UNK
     Route: 042
     Dates: end: 20030101
  23. OPIPRAMOL [Concomitant]
     Indication: DEPRESSION
     Dosage: DOSE: UNK
     Route: 048
  24. PANTOPRAZOL [Concomitant]
     Indication: GASTRITIS
     Dosage: DOSE: UNK
     Route: 048
     Dates: end: 20030101
  25. OMEPRAZOLE [Concomitant]
     Indication: GASTRITIS
     Dosage: DOSE: UNK
     Route: 048
     Dates: end: 20030101

REACTIONS (4)
  - ABDOMINAL PAIN [None]
  - BONE MARROW FAILURE [None]
  - GASTRITIS HAEMORRHAGIC [None]
  - PANCYTOPENIA [None]
